FAERS Safety Report 4782309-5 (Version None)
Quarter: 2005Q3

REPORT INFORMATION
  Report Type: 
  Country: None (occurrence: None)
  Receive Date: 20050927
  Receipt Date: 20050913
  Transmission Date: 20060218
  Serious: Yes (Hospitalization)
  Sender: FDA-Public Use
  Company Number: 200421086BWH

PATIENT
  Age: 62 Year
  Sex: Male
  Weight: 86.1834 kg

DRUGS (4)
  1. LEVITRA [Suspect]
     Indication: ERECTILE DYSFUNCTION
     Dosage: 10 MG, TOTAL DAILY, ORAL
     Route: 048
     Dates: start: 20041101
  2. DIOVAN [Concomitant]
  3. ASPIRIN [Concomitant]
  4. COREG [Concomitant]

REACTIONS (7)
  - ASTHENIA [None]
  - CEREBRAL ATROPHY [None]
  - CEREBRAL PARENCHYMAL CALCIFICATION [None]
  - HYPOAESTHESIA [None]
  - LACUNAR INFARCTION [None]
  - SPEECH DISORDER [None]
  - UNEVALUABLE EVENT [None]
